FAERS Safety Report 8029302-7 (Version None)
Quarter: 2012Q1

REPORT INFORMATION
  Report Type: 
  Country: None (occurrence: None)
  Receive Date: 20120106
  Receipt Date: 20111228
  Transmission Date: 20120608
  Serious: Yes (Hospitalization)
  Sender: FDA-Public Use
  Company Number: IE-MEDIMMUNE-MEDI-0014348

PATIENT
  Sex: Female

DRUGS (7)
  1. RANITIDINE HYDROCHLORIDE [Concomitant]
  2. CLONAZEPAM [Concomitant]
  3. LACTULOSE [Concomitant]
  4. SYNAGIS [Suspect]
     Route: 030
     Dates: start: 20111029, end: 20111029
  5. OMEPRAZOLE SODIUM [Concomitant]
  6. CHLORAL HYDRATE [Concomitant]
  7. VALPROATE SODIUM [Concomitant]

REACTIONS (2)
  - HIP DYSPLASIA [None]
  - APNOEA [None]
